FAERS Safety Report 19001279 (Version 1)
Quarter: 2021Q1

REPORT INFORMATION
  Report Type: Spontaneous
  Country: US (occurrence: US)
  Receive Date: 20210309
  Receipt Date: 20210309
  Transmission Date: 20210420
  Serious: Yes (Other)
  Sender: FDA-Public Use
  Company Number: None

PATIENT
  Age: 61 Year
  Weight: 135 kg

DRUGS (1)
  1. HSBCC SKIN TAGS + MOLES REMOVER (COSMETICS) [Suspect]
     Active Substance: COSMETICS
     Indication: ACROCHORDON EXCISION
     Dosage: ?          OTHER FREQUENCY:ONCE;?
     Route: 061
     Dates: start: 20210302, end: 20210302

REACTIONS (3)
  - Wound [None]
  - Application site ulcer [None]
  - Chemical burn [None]

NARRATIVE: CASE EVENT DATE: 20210302
